FAERS Safety Report 12713465 (Version 1)
Quarter: 2016Q3

REPORT INFORMATION
  Report Type: Spontaneous
  Country: US (occurrence: US)
  Receive Date: 20160903
  Receipt Date: 20160903
  Transmission Date: 20161109
  Serious: Yes (Hospitalization, Other)
  Sender: FDA-Public Use
  Company Number: US-AMGEN-USASP2016116154

PATIENT
  Age: 51 Year
  Sex: Male

DRUGS (5)
  1. LUPRON [Concomitant]
     Active Substance: LEUPROLIDE ACETATE
     Dosage: UNK
     Dates: start: 201512
  2. NEULASTA [Suspect]
     Active Substance: PEGFILGRASTIM
     Indication: PRODUCT USED FOR UNKNOWN INDICATION
     Dosage: UNK
     Route: 065
  3. CASODEX [Concomitant]
     Active Substance: BICALUTAMIDE
     Dosage: UNK
     Dates: start: 201512
  4. ZOMETA [Concomitant]
     Active Substance: ZOLEDRONIC ACID
     Indication: BONE DENSITY ABNORMAL
     Dosage: UNK
     Route: 042
  5. TAXOTERE [Concomitant]
     Active Substance: DOCETAXEL
     Dosage: UNK
     Dates: start: 20160706

REACTIONS (7)
  - Chills [Unknown]
  - Radiotherapy [Recovered/Resolved]
  - Body temperature increased [Unknown]
  - Pain [Recovering/Resolving]
  - Arthralgia [Recovering/Resolving]
  - Influenza [Unknown]
  - Brachytherapy [Unknown]

NARRATIVE: CASE EVENT DATE: 20160229
